FAERS Safety Report 6937033-7 (Version None)
Quarter: 2010Q3

REPORT INFORMATION
  Report Type: 
  Country: None (occurrence: None)
  Receive Date: 20100823
  Receipt Date: 20100810
  Transmission Date: 20110219
  Serious: Yes (Other)
  Sender: FDA-Public Use
  Company Number: PHHY2010FR41530

PATIENT
  Sex: Male
  Weight: 68 kg

DRUGS (3)
  1. EXFORGE [Suspect]
     Indication: HYPERTENSION
     Dosage: 1 DF, QD
     Route: 048
     Dates: start: 20081001, end: 20100626
  2. METFORMIN [Suspect]
     Indication: TYPE 2 DIABETES MELLITUS
     Dosage: 50 MG, TID
  3. CELECTOL [Concomitant]
     Indication: HYPERTENSION
     Dosage: 200 MG, BID

REACTIONS (2)
  - CHOLESTASIS [None]
  - HEPATITIS A [None]
